FAERS Safety Report 4713891-1 (Version None)
Quarter: 2005Q3

REPORT INFORMATION
  Report Type: 
  Country: None (occurrence: None)
  Receive Date: 20050713
  Receipt Date: 20050706
  Transmission Date: 20060218
  Serious: Yes (Death)
  Sender: FDA-Public Use
  Company Number: 212805

PATIENT
  Age: 62 Year
  Sex: Male

DRUGS (10)
  1. AVASTIN [Suspect]
     Indication: COLORECTAL CANCER METASTATIC
     Dosage: 375 MG, INTRAVENOUS
     Route: 042
     Dates: start: 20050110, end: 20050209
  2. ERLOTINIB (ERLOTINIB) TABLET, 150MG [Suspect]
     Indication: COLORECTAL CANCER METASTATIC
     Dosage: 150 MG, QD, ORAL
     Route: 048
     Dates: start: 20050110, end: 20050222
  3. OXALIPLATIN (OXALIPLATIN) [Suspect]
     Indication: COLORECTAL CANCER METASTATIC
     Dosage: 85 MG/M2, INTRAVENOUS
     Route: 042
     Dates: start: 20050110, end: 20050209
  4. 5-FU (FLUOROURACIL) [Suspect]
     Indication: COLORECTAL CANCER METASTATIC
     Dosage: 500 MG/M2
     Dates: start: 20050110, end: 20050210
  5. LEUCOVORIN CALCIUM [Suspect]
     Indication: COLORECTAL CANCER METASTATIC
     Dosage: 200 MG/M2, INTRAVENOUS
     Route: 042
     Dates: start: 20050110, end: 20050210
  6. CLONIDINE [Concomitant]
  7. METHYLDOPA [Concomitant]
  8. TOPROL-XL [Concomitant]
  9. VERAPAMIL [Concomitant]
  10. COUMADIN [Concomitant]

REACTIONS (13)
  - BLOOD CREATININE INCREASED [None]
  - BLOOD UREA INCREASED [None]
  - CATHETER RELATED INFECTION [None]
  - CATHETER SITE DISCHARGE [None]
  - DEHYDRATION [None]
  - DIARRHOEA [None]
  - FALL [None]
  - HAEMATOCRIT DECREASED [None]
  - HAEMORRHAGE [None]
  - NAUSEA [None]
  - PLATELET COUNT DECREASED [None]
  - RESUSCITATION [None]
  - VOMITING [None]
